FAERS Safety Report 9189131 (Version 2)
Quarter: 2013Q2

REPORT INFORMATION
  Report Type: Spontaneous
  Country: NL (occurrence: NL)
  Receive Date: 20130326
  Receipt Date: 20130405
  Transmission Date: 20140414
  Serious: Yes (Hospitalization)
  Sender: FDA-Public Use
  Company Number: NL-AMGEN-NLDSP2013020864

PATIENT
  Age: 2 Year
  Sex: Female

DRUGS (1)
  1. ENBREL [Suspect]
     Indication: JUVENILE IDIOPATHIC ARTHRITIS
     Dosage: 0.4 MG/KG, 3 TO 4 DAYS INTERVAL
     Dates: start: 20120831

REACTIONS (5)
  - Hepatic function abnormal [Recovered/Resolved]
  - Rash macular [Recovered/Resolved]
  - Cough [Recovering/Resolving]
  - Gastroenteritis viral [Recovering/Resolving]
  - Ear infection [Recovering/Resolving]
